FAERS Safety Report 23652329 (Version 1)
Quarter: 2024Q1

REPORT INFORMATION
  Report Type: Spontaneous
  Country: GB (occurrence: GB)
  Receive Date: 20240320
  Receipt Date: 20240320
  Transmission Date: 20240409
  Serious: Yes (Hospitalization, Other)
  Sender: FDA-Public Use
  Company Number: GB-Accord-405355

PATIENT
  Age: 36 Year
  Sex: Female
  Weight: 49.6 kg

DRUGS (11)
  1. PACLITAXEL [Suspect]
     Active Substance: PACLITAXEL
     Indication: Cervix carcinoma
     Dosage: STRENGTH: 300 MG/50ML
     Route: 042
     Dates: start: 20231211, end: 20240123
  2. PEMBROLIZUMAB [Concomitant]
     Active Substance: PEMBROLIZUMAB
     Indication: Premedication
     Route: 042
  3. GABAPENTIN [Concomitant]
     Active Substance: GABAPENTIN
     Indication: Product used for unknown indication
     Dosage: STRENGTH: 300 MG CAPS (1 TDS)
     Route: 048
     Dates: start: 20231212
  4. MORPHINE SULFATE [Concomitant]
     Active Substance: MORPHINE SULFATE
     Indication: Product used for unknown indication
     Dosage: STRENGTH: 10 MG MODIFIED RELEASE CAPSULE?20 MG (1 TWO TIMES A DAY)
     Route: 048
     Dates: start: 20231207
  5. MORPHINE SULFATE [Concomitant]
     Active Substance: MORPHINE SULFATE
     Indication: Product used for unknown indication
     Dosage: STRENGTH: 30 MG MODIFIED RELEASE CAPSULE?30 MG (1 TWO TIMES A DAY)
     Route: 048
     Dates: start: 20231207
  6. LOPERAMIDE [Concomitant]
     Active Substance: LOPERAMIDE
     Indication: Stoma care
     Dosage: STRENGTH: 2 MG?2 MG THREE TIME A DAY AS NEEDED
     Route: 048
     Dates: start: 20231130
  7. MORPHINE SULFATE [Concomitant]
     Active Substance: MORPHINE SULFATE
     Indication: Product used for unknown indication
     Dosage: STRENGTH: 10 MG/5 ML?DOSE: 2.5 ML TO 5 ML EVERY 4 TO 6 HOURS AS NEEDED MAXIMUM FOUR TIMES DAILY
     Route: 048
     Dates: start: 20231120
  8. MELOXICAM [Concomitant]
     Active Substance: MELOXICAM
     Indication: Product used for unknown indication
     Dosage: STRENGTH: 15 MG?DOSE: 1 ONCE DAILY
     Route: 048
     Dates: start: 20231129
  9. OMEPRAZOLE [Concomitant]
     Active Substance: OMEPRAZOLE
     Indication: Product used for unknown indication
     Dosage: STRENGTH: 10 MG ?DOSE: 1 ONCE DAILY
     Route: 048
     Dates: start: 20231129
  10. FLUTICASONE PROPIONATE [Concomitant]
     Active Substance: FLUTICASONE PROPIONATE
     Indication: Asthma
     Dosage: STRENGTH: 100 MCG ACCUHALER?DOSE: 1 TWO TIMES A DAY
     Route: 048
     Dates: start: 20230906
  11. ALBUTEROL [Concomitant]
     Active Substance: ALBUTEROL
     Indication: Asthma
     Dosage: STRENGTH: 100 MCG INH?1 OR 2 UP TO FOUR TIMES A DAY
     Route: 048
     Dates: start: 20230906

REACTIONS (3)
  - Cold sweat [Recovered/Resolved]
  - Irregular breathing [Recovered/Resolved]
  - Off label use [Unknown]

NARRATIVE: CASE EVENT DATE: 20240123
